FAERS Safety Report 5150287-5 (Version None)
Quarter: 2006Q4

REPORT INFORMATION
  Report Type: 
  Country: None (occurrence: None)
  Receive Date: 20061108
  Receipt Date: 20061030
  Transmission Date: 20070319
  Serious: Yes (Life-Threatening, Hospitalization, Disabling)
  Sender: FDA-Public Use
  Company Number: GXKR2006GB06918

PATIENT
  Age: 60 Year
  Sex: Male

DRUGS (3)
  1. DOXAZOSIN (NGX)(DOXAZOSIN) UNKNOWN [Suspect]
     Dosage: 4 MG,QD
     Dates: start: 20060808
  2. AMLODIPINE [Concomitant]
  3. PERINDOPRIL ERBUMINE [Concomitant]

REACTIONS (3)
  - DIZZINESS [None]
  - FALL [None]
  - RIB FRACTURE [None]
